FAERS Safety Report 8349202-2 (Version None)
Quarter: 2012Q2

REPORT INFORMATION
  Report Type: 
  Country: None (occurrence: None)
  Receive Date: 20120510
  Receipt Date: 20120430
  Transmission Date: 20120825
  Serious: Yes (Hospitalization)
  Sender: FDA-Public Use
  Company Number: PHHY2012CA037869

PATIENT
  Sex: Male

DRUGS (4)
  1. CLOZAPINE [Suspect]
     Dosage: UNK
     Route: 048
     Dates: start: 20040101, end: 20110914
  2. VALPROIC ACID [Concomitant]
  3. QUETIAPINE [Concomitant]
  4. ZYPREXA [Concomitant]

REACTIONS (3)
  - NEUTROPENIA [None]
  - LEUKOPENIA [None]
  - PSYCHIATRIC DECOMPENSATION [None]
